FAERS Safety Report 8919241 (Version 1)
Quarter: 2012Q4

REPORT INFORMATION
  Report Type: Report from Study
  Country: IT (occurrence: IT)
  Receive Date: 20121121
  Receipt Date: 20121121
  Transmission Date: 20130627
  Serious: Yes (Other)
  Sender: FDA-Public Use
  Company Number: IT-PFIZER INC-2012287820

PATIENT
  Age: 50 Year
  Sex: Female

DRUGS (1)
  1. SUNITINIB MALATE [Suspect]
     Indication: PAPILLARY THYROID CANCER
     Dosage: 50 mg qd for 4 wk followed by 2 wk off drug

REACTIONS (3)
  - Pneumonia [Unknown]
  - Rash [Unknown]
  - Fatigue [Unknown]
